FAERS Safety Report 7282163-6 (Version None)
Quarter: 2011Q1

REPORT INFORMATION
  Report Type: 
  Country: None (occurrence: None)
  Receive Date: 20110208
  Receipt Date: 20110204
  Transmission Date: 20110831
  Serious: Yes (Hospitalization)
  Sender: FDA-Public Use
  Company Number: US-BRISTOL-MYERS SQUIBB COMPANY-15519358

PATIENT
  Age: 28 Month
  Sex: Female
  Weight: 9 kg

DRUGS (3)
  1. MESNA [Concomitant]
     Dosage: FIRST INFUSION FROM HOUR 1 TO 2 AND SECOND INFUSION AT HOUR 4 AND 7.
     Route: 042
  2. IFOSFAMIDE [Suspect]
     Indication: RHABDOMYOSARCOMA
     Dosage: DOSAGE:HOUR 2-4
     Route: 042
  3. ETOPOSIDE [Suspect]
     Indication: RHABDOMYOSARCOMA
     Route: 042

REACTIONS (1)
  - ENCEPHALOPATHY [None]
